FAERS Safety Report 11371341 (Version 1)
Quarter: 2015Q3

REPORT INFORMATION
  Report Type: Report from Study
  Country: US (occurrence: US)
  Receive Date: 20150812
  Receipt Date: 20150812
  Transmission Date: 20151125
  Serious: Yes (Hospitalization, Other)
  Sender: FDA-Public Use
  Company Number: US-GILEAD-2015-0167002

PATIENT
  Age: 32 Year
  Sex: Female

DRUGS (1)
  1. IDELALISIB [Suspect]
     Active Substance: IDELALISIB
     Indication: B-CELL LYMPHOMA
     Dosage: 150 MG, BID
     Route: 048
     Dates: start: 20150407

REACTIONS (5)
  - Staphylococcal infection [Unknown]
  - Lung disorder [Unknown]
  - Arthritis [Unknown]
  - Device related infection [Unknown]
  - Central venous catheter removal [Unknown]
